FAERS Safety Report 11651742 (Version 4)
Quarter: 2016Q1

REPORT INFORMATION
  Report Type: Report from Study
  Country: BR (occurrence: BR)
  Receive Date: 20151022
  Receipt Date: 20160114
  Transmission Date: 20160525
  Serious: Yes (Other)
  Sender: FDA-Public Use
  Company Number: BR-ABBVIE-15K-020-1484816-00

PATIENT
  Age: 59 Year
  Sex: Female
  Weight: 92 kg

DRUGS (9)
  1. FOLIC ACID. [Concomitant]
     Active Substance: FOLIC ACID
     Indication: VITAMIN SUPPLEMENTATION
     Route: 048
     Dates: start: 201507
  2. CALCITONIN [Concomitant]
     Active Substance: CALCITONIN
     Indication: ARTHRALGIA
     Dosage: 1 PUFF IN EACH NOSTRIL IN THE MORNING
     Route: 045
     Dates: start: 2012
  3. HUMIRA [Suspect]
     Active Substance: ADALIMUMAB
     Indication: RHEUMATOID ARTHRITIS
     Route: 058
     Dates: start: 20040111, end: 20151016
  4. CALCITONIN [Concomitant]
     Active Substance: CALCITONIN
     Indication: OSTEOPOROSIS
  5. DEFLAZACORT [Concomitant]
     Active Substance: DEFLAZACORT
     Indication: ARTHRITIS
     Route: 048
     Dates: start: 201507
  6. CALCIUM [Concomitant]
     Active Substance: CALCIUM
     Indication: OSTEOPOROSIS
     Route: 048
     Dates: start: 201507
  7. METHOTREXATE [Concomitant]
     Active Substance: METHOTREXATE
     Indication: ARTHRITIS
     Route: 048
     Dates: start: 2012
  8. ENALAPRIL MALEATE. [Concomitant]
     Active Substance: ENALAPRIL MALEATE
     Indication: BLOOD PRESSURE ABNORMAL
     Route: 048
     Dates: start: 1998
  9. ATENOLOL. [Concomitant]
     Active Substance: ATENOLOL
     Indication: BLOOD PRESSURE ABNORMAL
     Route: 048
     Dates: start: 1998

REACTIONS (4)
  - Osteomyelitis [Recovering/Resolving]
  - Immunodeficiency [Recovered/Resolved]
  - Osteoporosis [Unknown]
  - Arthritis [Recovering/Resolving]

NARRATIVE: CASE EVENT DATE: 201410
